FAERS Safety Report 8368924-0 (Version None)
Quarter: 2012Q2

REPORT INFORMATION
  Report Type: 
  Country: None (occurrence: None)
  Receive Date: 20120516
  Receipt Date: 20120516
  Transmission Date: 20120825
  Serious: Yes (Other)
  Sender: FDA-Public Use
  Company Number: None

PATIENT
  Age: 9 Year
  Sex: Female
  Weight: 19.2 kg

DRUGS (16)
  1. RAD001 EVEROLIMUS [Suspect]
     Indication: GLIOMA
     Dosage: 4MG PO DAILY
     Route: 048
     Dates: start: 20120410, end: 20120411
  2. RAD001 EVEROLIMUS [Suspect]
     Indication: GLIOMA
     Dosage: 4MG PO DAILY
     Route: 048
     Dates: start: 20120501
  3. BENADRYL [Concomitant]
  4. LEVETIRACETAM [Concomitant]
  5. VANCOMYCIN [Concomitant]
  6. TOPICAL EMOLLIENTS [Concomitant]
  7. CEFAZOLIN [Concomitant]
  8. COLLOIDAL OATMEAL TOPICAL [Concomitant]
  9. DESMOPRESSIN ACETATE [Concomitant]
  10. MIRALAX [Concomitant]
  11. ACETAMINOPHEN [Concomitant]
  12. ONDANSETRON [Concomitant]
  13. RANITIDINE [Concomitant]
  14. SENNA-MINT WAF [Concomitant]
  15. SARNA [Concomitant]
  16. DIPHENHYDRAMINE=ZINC ACETATE TOPICAL, [Concomitant]

REACTIONS (1)
  - HAEMOGLOBIN DECREASED [None]
